FAERS Safety Report 13754928 (Version 2)
Quarter: 2017Q3

REPORT INFORMATION
  Report Type: Spontaneous
  Country: US (occurrence: US)
  Receive Date: 20170714
  Receipt Date: 20170811
  Transmission Date: 20171127
  Serious: Yes (Hospitalization, Other)
  Sender: FDA-Public Use
  Company Number: US-009507513-1707USA002137

PATIENT
  Age: 54 Year
  Sex: Male

DRUGS (7)
  1. GABAPENTIN. [Concomitant]
     Active Substance: GABAPENTIN
  2. CETIRIZINE HYDROCHLORIDE. [Concomitant]
     Active Substance: CETIRIZINE HYDROCHLORIDE
     Dosage: UNK
  3. JANUMET XR [Suspect]
     Active Substance: METFORMIN HYDROCHLORIDE\SITAGLIPTIN PHOSPHATE
     Indication: DIABETES MELLITUS
     Dosage: 50/1000 MG, TWICE A DAY
     Route: 048
     Dates: start: 201607, end: 20170320
  4. OXYCODONE [Concomitant]
     Active Substance: OXYCODONE
  5. AMITRIPTYLINE HYDROCHLORIDE. [Concomitant]
     Active Substance: AMITRIPTYLINE HYDROCHLORIDE
  6. SIMVASTATIN TABLETS, USP [Concomitant]
     Active Substance: SIMVASTATIN
     Dosage: UNK
     Route: 048
  7. METFORMIN [Suspect]
     Active Substance: METFORMIN HYDROCHLORIDE
     Dosage: UNK

REACTIONS (17)
  - Brain oedema [Recovering/Resolving]
  - Acidosis [Recovering/Resolving]
  - Stent placement [Unknown]
  - Acute kidney injury [Recovering/Resolving]
  - Vomiting [Recovering/Resolving]
  - Life support [Recovering/Resolving]
  - Anaemia [Recovering/Resolving]
  - Azotaemia [Recovering/Resolving]
  - Hyperkalaemia [Recovering/Resolving]
  - Amnesia [Recovering/Resolving]
  - Diarrhoea [Recovering/Resolving]
  - Mental status changes [Recovering/Resolving]
  - Cardiac disorder [Recovered/Resolved]
  - Dialysis [Recovering/Resolving]
  - Loss of consciousness [Recovered/Resolved]
  - Hypercalcaemia [Recovering/Resolving]
  - Visual impairment [Recovering/Resolving]

NARRATIVE: CASE EVENT DATE: 2017
